FAERS Safety Report 5939703-6 (Version None)
Quarter: 2008Q4

REPORT INFORMATION
  Report Type: 
  Country: None (occurrence: None)
  Receive Date: 20081030
  Receipt Date: 20081030
  Transmission Date: 20090506
  Serious: Yes (Hospitalization)
  Sender: FDA-Public Use
  Company Number: None

PATIENT
  Age: 45 Year
  Sex: Male

DRUGS (6)
  1. SIMVASTATIN [Suspect]
     Indication: HYPERLIPIDAEMIA
     Dosage: 10MG QPM PO
     Route: 048
     Dates: start: 20080820, end: 20081023
  2. COGENTIN [Concomitant]
  3. KLONOPIN [Concomitant]
  4. DEPAKENE [Concomitant]
  5. HALDOL DEC [Concomitant]
  6. RISPERDAL [Concomitant]

REACTIONS (1)
  - BLOOD CREATINE PHOSPHOKINASE INCREASED [None]
